FAERS Safety Report 6252087-1 (Version None)
Quarter: 2009Q2

REPORT INFORMATION
  Report Type: 
  Country: None (occurrence: None)
  Receive Date: 20090630
  Receipt Date: 20060113
  Transmission Date: 20091009
  Serious: Yes (Death, Hospitalization)
  Sender: FDA-Public Use
  Company Number: US-ROCHE-638886

PATIENT
  Sex: Male

DRUGS (8)
  1. ENFUVIRTIDE [Suspect]
     Route: 065
     Dates: start: 20050302, end: 20060314
  2. APTIVUS [Concomitant]
     Dates: start: 20050302, end: 20060314
  3. NORVIR [Concomitant]
     Dates: start: 20050302, end: 20060314
  4. TRUVADA [Concomitant]
     Dosage: FREQUENCY REPORTED AS QD
     Dates: start: 20050302, end: 20060314
  5. BACTRIM [Concomitant]
     Dates: start: 20060101, end: 20060101
  6. ROCEPHIN [Concomitant]
     Dates: start: 20060101, end: 20060101
  7. ZITHROMAX [Concomitant]
     Dates: start: 20060101, end: 20060101
  8. DIFLUCAN [Concomitant]
     Dosage: FREQUENCY REPORTED AS QD.
     Dates: start: 19960804, end: 20060101

REACTIONS (7)
  - ANAEMIA [None]
  - BLOOD OSMOLARITY DECREASED [None]
  - DEATH [None]
  - DIARRHOEA [None]
  - HIV INFECTION [None]
  - HYPONATRAEMIA [None]
  - HYPOTENSION [None]
